FAERS Safety Report 18605461 (Version 1)
Quarter: 2020Q4

REPORT INFORMATION
  Report Type: Spontaneous
  Country: FR (occurrence: FR)
  Receive Date: 20201211
  Receipt Date: 20201211
  Transmission Date: 20210114
  Serious: Yes (Hospitalization)
  Sender: FDA-Public Use
  Company Number: NVSC2020FR324578

PATIENT
  Age: 73 Year
  Sex: Female

DRUGS (14)
  1. ONGLYZA [Concomitant]
     Active Substance: SAXAGLIPTIN HYDROCHLORIDE
     Indication: TYPE 2 DIABETES MELLITUS
     Dosage: 5 MG,QD (1 LE MIDI)
     Route: 048
  2. METOCLOPRAMIDE. [Concomitant]
     Active Substance: METOCLOPRAMIDE
     Indication: NAUSEA
     Dosage: 1 DF, PRN
     Route: 048
     Dates: start: 202003, end: 20200408
  3. BICARBONATE DE SODIUM AGUETTANT [Concomitant]
     Active Substance: SODIUM BICARBONATE
     Indication: CHEMOTHERAPY
     Dosage: UNK, 3 ? 4/JOUR
     Route: 048
     Dates: start: 202003, end: 20200408
  4. SIMVASTATINE [Concomitant]
     Active Substance: SIMVASTATIN
     Indication: PRODUCT USED FOR UNKNOWN INDICATION
     Dosage: 10 MG,QD (LE SOIR)
     Route: 048
     Dates: end: 20200408
  5. DIAMICRON [Concomitant]
     Active Substance: GLICLAZIDE
     Indication: TYPE 2 DIABETES MELLITUS
     Dosage: 1.5 MG,QD (1.5 LE MATIN)
     Route: 048
     Dates: end: 20200408
  6. COTAREG [Concomitant]
     Active Substance: HYDROCHLOROTHIAZIDE\VALSARTAN
     Indication: HYPERTENSION
     Dosage: 1 DF,QD (1 LE MATIN)
     Route: 048
     Dates: end: 20200408
  7. DEXERYL [Concomitant]
     Indication: DRY SKIN PROPHYLAXIS
     Dosage: 1 DF, QD, 1 ? 2 APPL /JOUR
     Route: 003
     Dates: start: 202003, end: 20200408
  8. FEMARA [Suspect]
     Active Substance: LETROZOLE
     Dosage: 2.5 MG, QD, LE SOIR
     Route: 048
     Dates: start: 20200422
  9. FEMARA [Suspect]
     Active Substance: LETROZOLE
     Indication: BREAST CANCER
     Dosage: 2.5 MG,QD (LE SOIR)
     Route: 048
     Dates: start: 202003, end: 20200408
  10. ABEMACICLIB [Suspect]
     Active Substance: ABEMACICLIB
     Indication: BREAST CANCER
     Dosage: 300 MG,QD (MATIN ET SOIR)
     Route: 048
     Dates: start: 202003, end: 20200408
  11. GLUCOPHAGE [Interacting]
     Active Substance: METFORMIN HYDROCHLORIDE
     Indication: TYPE 2 DIABETES MELLITUS
     Dosage: 3 G,QD (1-1-1)
     Route: 048
     Dates: start: 2016, end: 20200408
  12. PROPRANOLOL [Concomitant]
     Active Substance: PROPRANOLOL HYDROCHLORIDE
     Indication: HYPERTENSION
     Dosage: 40 MG,QD (1 LE MATIN)
     Route: 048
  13. PARACETAMOL [Concomitant]
     Active Substance: ACETAMINOPHEN
     Indication: PAIN
     Dosage: 2 G,QD (1 MATIN ET SOIR SI BESOIN)
     Route: 048
  14. LOPERAMIDE [Concomitant]
     Active Substance: LOPERAMIDE
     Indication: DIARRHOEA
     Dosage: 1 DF, PRN
     Route: 048
     Dates: start: 202003, end: 20200408

REACTIONS (3)
  - Acute kidney injury [Recovered/Resolved]
  - Diarrhoea [Recovered/Resolved]
  - Vomiting [Recovered/Resolved]

NARRATIVE: CASE EVENT DATE: 20200406
